FAERS Safety Report 4482065-4 (Version None)
Quarter: 2004Q3

REPORT INFORMATION
  Report Type: 
  Country: None (occurrence: None)
  Receive Date: 20040921
  Receipt Date: 20031008
  Transmission Date: 20050211
  Serious: Yes (Other)
  Sender: FDA-Public Use
  Company Number: 163-20785-03060852(1)

PATIENT
  Age: 38 Year
  Sex: Female
  Weight: 56 kg

DRUGS (4)
  1. THALOMID [Suspect]
     Indication: MYCOSIS FUNGOIDES
     Dosage: SEE IMAGE
     Route: 048
     Dates: start: 20030515, end: 20030917
  2. THALOMID [Suspect]
     Indication: MYCOSIS FUNGOIDES
     Dosage: SEE IMAGE
     Route: 048
     Dates: start: 20030918, end: 20031006
  3. TRICOR [Concomitant]
  4. DOXEPIN HCL [Concomitant]

REACTIONS (3)
  - BURNING SENSATION [None]
  - CONSTIPATION [None]
  - DIZZINESS [None]
